FAERS Safety Report 8207869-3 (Version None)
Quarter: 2012Q1

REPORT INFORMATION
  Report Type: 
  Country: None (occurrence: None)
  Receive Date: 20120314
  Receipt Date: 20120307
  Transmission Date: 20120608
  Serious: Yes (Death, Hospitalization)
  Sender: FDA-Public Use
  Company Number: FR-JNJFOC-20100302650

PATIENT
  Sex: Male
  Weight: 70 kg

DRUGS (5)
  1. ABIRATERONE ACETATE [Suspect]
     Indication: PROSTATE CANCER METASTATIC
     Route: 048
     Dates: end: 20100305
  2. ABIRATERONE ACETATE [Suspect]
     Route: 048
  3. PREDNISOLONE [Suspect]
     Indication: PROSTATE CANCER METASTATIC
     Route: 048
     Dates: end: 20100305
  4. GONADORELIN INJ [Concomitant]
     Indication: HORMONE THERAPY
     Route: 030
     Dates: start: 20051011
  5. GONADORELIN INJ [Concomitant]
     Route: 030
     Dates: start: 20100226, end: 20100306

REACTIONS (19)
  - ASTHENIA [None]
  - FOOD INTOLERANCE [None]
  - HYPOTENSION [None]
  - INTESTINAL INFARCTION [None]
  - VOMITING [None]
  - INGUINAL HERNIA STRANGULATED [None]
  - PROCEDURAL PAIN [None]
  - DIARRHOEA [None]
  - TACHYCARDIA [None]
  - GASTROINTESTINAL PERFORATION [None]
  - WOUND COMPLICATION [None]
  - DECREASED APPETITE [None]
  - LIVEDO RETICULARIS [None]
  - RENAL FAILURE ACUTE [None]
  - INFECTIOUS PERITONITIS [None]
  - GASTROINTESTINAL NECROSIS [None]
  - SMALL INTESTINAL OBSTRUCTION [None]
  - SHOCK [None]
  - INTESTINAL ISCHAEMIA [None]
